FAERS Safety Report 5532275-X (Version None)
Quarter: 2007Q4

REPORT INFORMATION
  Report Type: 
  Country: None (occurrence: None)
  Receive Date: 20071203
  Receipt Date: 20071121
  Transmission Date: 20080405
  Serious: Yes (Other)
  Sender: FDA-Public Use
  Company Number: US-ELI_LILLY_AND_COMPANY-US200711005487

PATIENT
  Sex: Female

DRUGS (2)
  1. FORTEO [Suspect]
  2. CYMBALTA [Concomitant]

REACTIONS (5)
  - DIZZINESS [None]
  - DYSPNOEA [None]
  - FALL [None]
  - INTESTINAL OBSTRUCTION [None]
  - RIB FRACTURE [None]
